FAERS Safety Report 24939282 (Version 14)
Quarter: 2025Q1

REPORT INFORMATION
  Report Type: Report from Study
  Country: CA (occurrence: CA)
  Receive Date: 20250206
  Receipt Date: 20250331
  Transmission Date: 20250408
  Serious: Yes (Hospitalization, Other)
  Sender: HLS THERAPEUTICS
  Company Number: CA-HLS-202500320

PATIENT
  Age: 55 Year
  Sex: Male

DRUGS (4)
  1. CLOZARIL [Suspect]
     Active Substance: CLOZAPINE
     Indication: Schizophrenia
     Route: 048
     Dates: start: 2025
  2. CLOZARIL [Suspect]
     Active Substance: CLOZAPINE
     Indication: Schizophrenia
     Route: 048
     Dates: start: 20020205, end: 20250203
  3. DILANTIN [Concomitant]
     Active Substance: PHENYTOIN
     Indication: Temporal lobe epilepsy
     Route: 065
  4. PHENOBARBITAL [Concomitant]
     Active Substance: PHENOBARBITAL
     Indication: Temporal lobe epilepsy
     Route: 065

REACTIONS (25)
  - Monocyte count decreased [Unknown]
  - Blood alkaline phosphatase increased [Unknown]
  - Neutropenia [Unknown]
  - Neutropenia [Recovered/Resolved]
  - Blood creatinine decreased [Unknown]
  - C-reactive protein increased [Unknown]
  - Insomnia [Unknown]
  - Red blood cell count decreased [Unknown]
  - Schizophrenia [Unknown]
  - Gastrointestinal disorder [Recovering/Resolving]
  - Haematocrit decreased [Unknown]
  - Haemoglobin decreased [Unknown]
  - Blood lactic acid increased [Unknown]
  - Lymphocyte percentage increased [Unknown]
  - Monocyte percentage increased [Recovered/Resolved]
  - Musculoskeletal stiffness [Unknown]
  - Neutrophil percentage decreased [Unknown]
  - Withdrawal syndrome [Unknown]
  - Nervousness [Unknown]
  - Blood gases abnormal [Unknown]
  - Platelet count increased [Recovered/Resolved]
  - Influenza [Recovering/Resolving]
  - Suspected COVID-19 [Recovering/Resolving]
  - White blood cell count decreased [Recovered/Resolved]
  - White blood cell count decreased [Recovered/Resolved]

NARRATIVE: CASE EVENT DATE: 20250120
